FAERS Safety Report 6247011-1 (Version None)
Quarter: 2009Q2

REPORT INFORMATION
  Report Type: 
  Country: None (occurrence: None)
  Receive Date: 20090626
  Receipt Date: 20090617
  Transmission Date: 20091009
  Serious: Yes (Other)
  Sender: FDA-Public Use
  Company Number: IT-AMGEN-UK335996

PATIENT
  Sex: Female
  Weight: 65 kg

DRUGS (3)
  1. PANITUMUMAB [Suspect]
     Indication: COLORECTAL CANCER
     Route: 042
     Dates: start: 20081106
  2. ACETAMINOPHEN AND OXYCODONE HCL [Concomitant]
     Route: 048
     Dates: start: 20081112
  3. VOLTAREN [Concomitant]
     Route: 030
     Dates: start: 20081112

REACTIONS (2)
  - BLEPHARITIS [None]
  - SEBORRHOEA [None]
